FAERS Safety Report 5239159-5 (Version None)
Quarter: 2007Q1

REPORT INFORMATION
  Report Type: 
  Country: None (occurrence: None)
  Receive Date: 20061208
  Receipt Date: 20050314
  Transmission Date: 20070707
  Serious: Yes (Other)
  Sender: FDA-Public Use
  Company Number: 2005UW04079

PATIENT
  Age: 68 Year
  Sex: Female

DRUGS (9)
  1. CRESTOR [Suspect]
     Dosage: 5 MG QD PO
     Route: 048
     Dates: start: 20050307, end: 20050314
  2. WELLBUTRIN [Concomitant]
  3. SYNTHROID [Concomitant]
  4. ZESTRIL [Concomitant]
  5. HYDROCHLOROTHIAZIDE [Concomitant]
  6. NEXIUM [Concomitant]
  7. ZANTAC [Concomitant]
  8. ZYPREXA [Concomitant]
  9. LAMICTAL [Concomitant]

REACTIONS (3)
  - ABDOMINAL DISTENSION [None]
  - ABDOMINAL PAIN UPPER [None]
  - DIARRHOEA [None]
